FAERS Safety Report 16894762 (Version 1)
Quarter: 2019Q4

REPORT INFORMATION
  Report Type: Spontaneous
  Country: FR (occurrence: FR)
  Receive Date: 20191008
  Receipt Date: 20191008
  Transmission Date: 20200122
  Serious: Yes (Death, Other)
  Sender: FDA-Public Use
  Company Number: FR-PFIZER INC-2019425747

PATIENT
  Age: 84 Year
  Sex: Male
  Weight: 87 kg

DRUGS (1)
  1. VYNDAQEL [Suspect]
     Active Substance: TAFAMIDIS MEGLUMINE
     Dosage: 20 MG, DAILY
     Dates: end: 20190304

REACTIONS (2)
  - Cardiac failure chronic [Unknown]
  - Death [Fatal]

NARRATIVE: CASE EVENT DATE: 20190304
